FAERS Safety Report 15793964 (Version 1)
Quarter: 2019Q1

REPORT INFORMATION
  Report Type: Spontaneous
  Country: US (occurrence: US)
  Receive Date: 20190106
  Receipt Date: 20190106
  Transmission Date: 20190417
  Serious: Yes (Disabling)
  Sender: FDA-Public Use
  Company Number: None

PATIENT
  Age: 73 Year
  Sex: Female
  Weight: 69.75 kg

DRUGS (19)
  1. BACLOFEN. [Concomitant]
     Active Substance: BACLOFEN
  2. COPAXONE [Concomitant]
     Active Substance: GLATIRAMER ACETATE
  3. FLONASE [Concomitant]
     Active Substance: FLUTICASONE PROPIONATE
  4. CALCIUM [Concomitant]
     Active Substance: CALCIUM
  5. SYNTHROID [Concomitant]
     Active Substance: LEVOTHYROXINE SODIUM
  6. FISH OIL [Concomitant]
     Active Substance: FISH OIL
  7. MODAFINIL. [Suspect]
     Active Substance: MODAFINIL
     Indication: SLEEP APNOEA SYNDROME
     Dosage: ?          QUANTITY:1 TABLET(S);?
     Route: 048
  8. ACETAMINOPHEN. [Concomitant]
     Active Substance: ACETAMINOPHEN
  9. ZYRTEC [Concomitant]
     Active Substance: CETIRIZINE HYDROCHLORIDE
  10. SIMVASTATIN. [Concomitant]
     Active Substance: SIMVASTATIN
  11. MULTIVITAMINS [Concomitant]
     Active Substance: VITAMINS
  12. INGREZZA [Concomitant]
     Active Substance: VALBENAZINE
  13. VITAMIN D [Concomitant]
     Active Substance: CHOLECALCIFEROL
  14. ZANTAC [Concomitant]
     Active Substance: RANITIDINE HYDROCHLORIDE
  15. FOSAMAX [Concomitant]
     Active Substance: ALENDRONATE SODIUM
  16. GABAPENTIN. [Concomitant]
     Active Substance: GABAPENTIN
  17. LATANOPROST. [Concomitant]
     Active Substance: LATANOPROST
  18. ASPIRIN. [Concomitant]
     Active Substance: ASPIRIN
  19. MAGNESIUM [Concomitant]
     Active Substance: MAGNESIUM

REACTIONS (3)
  - Stress [None]
  - Tardive dyskinesia [None]
  - Dyspnoea [None]

NARRATIVE: CASE EVENT DATE: 20180219
